FAERS Safety Report 8074547-3 (Version None)
Quarter: 2012Q1

REPORT INFORMATION
  Report Type: 
  Country: None (occurrence: None)
  Receive Date: 20120126
  Receipt Date: 20120117
  Transmission Date: 20120608
  Serious: No
  Sender: FDA-Public Use
  Company Number: US-ELI_LILLY_AND_COMPANY-US201201005707

PATIENT
  Age: 50 Year
  Sex: Male

DRUGS (1)
  1. CIALIS [Suspect]
     Dosage: 20 MG, UNK

REACTIONS (1)
  - VISION BLURRED [None]
